FAERS Safety Report 5678506-7 (Version None)
Quarter: 2008Q1

REPORT INFORMATION
  Report Type: 
  Country: None (occurrence: None)
  Receive Date: 20080325
  Receipt Date: 20080313
  Transmission Date: 20080703
  Serious: Yes (Other)
  Sender: FDA-Public Use
  Company Number: HQWYE209617JUL04

PATIENT
  Sex: Female
  Weight: 93.07 kg

DRUGS (1)
  1. PREMARIN [Suspect]
     Dosage: UNSPECIFIED
     Route: 048
     Dates: start: 19840101, end: 19990101

REACTIONS (7)
  - AMNESIA [None]
  - BREAST CANCER [None]
  - CARDIAC ARREST [None]
  - DIABETES MELLITUS [None]
  - DYSPHAGIA [None]
  - HEART RATE IRREGULAR [None]
  - MYOCARDIAL INFARCTION [None]
